FAERS Safety Report 19050938 (Version 1)
Quarter: 2021Q1

REPORT INFORMATION
  Report Type: Spontaneous
  Country: US (occurrence: US)
  Receive Date: 20210324
  Receipt Date: 20210324
  Transmission Date: 20210420
  Serious: Yes (Hospitalization)
  Sender: FDA-Public Use
  Company Number: None

PATIENT
  Age: 64 Year
  Sex: Female
  Weight: 67.13 kg

DRUGS (5)
  1. RITUXAN [Suspect]
     Active Substance: RITUXIMAB
     Indication: ARTHRITIS
     Dosage: ?          OTHER FREQUENCY:2 WEEK CYCLE Q 5MO;?
     Route: 041
     Dates: start: 20151201, end: 20201119
  2. HYDROXYUREA. [Concomitant]
     Active Substance: HYDROXYUREA
     Dates: start: 20130325
  3. ATENOLOL. [Concomitant]
     Active Substance: ATENOLOL
     Dates: start: 20161013
  4. ALENDRONATE [Concomitant]
     Active Substance: ALENDRONATE SODIUM
  5. ASPIRIN. [Concomitant]
     Active Substance: ASPIRIN
     Dates: start: 20121228

REACTIONS (14)
  - Melaena [None]
  - Acute respiratory failure [None]
  - Hypoxia [None]
  - Pneumonia bacterial [None]
  - Decreased appetite [None]
  - COVID-19 pneumonia [None]
  - Hypotension [None]
  - Leukopenia [None]
  - Dehydration [None]
  - Weight decreased [None]
  - Malnutrition [None]
  - Immunodeficiency [None]
  - Tachycardia [None]
  - Tachypnoea [None]

NARRATIVE: CASE EVENT DATE: 20210108
